FAERS Safety Report 25268371 (Version 1)
Quarter: 2025Q2

REPORT INFORMATION
  Report Type: Spontaneous
  Country: US (occurrence: None)
  Receive Date: 20250503
  Receipt Date: 20250503
  Transmission Date: 20250717
  Serious: Yes (Hospitalization, Other)
  Sender: FDA-CTU
  Company Number: None

PATIENT
  Age: 50 Year
  Sex: Male
  Weight: 69.75 kg

DRUGS (1)
  1. ZOLOFT [Suspect]
     Active Substance: SERTRALINE HYDROCHLORIDE
     Indication: Obsessive-compulsive disorder

REACTIONS (7)
  - Sexual dysfunction [None]
  - Genital hypoaesthesia [None]
  - Loss of libido [None]
  - Erectile dysfunction [None]
  - Anorgasmia [None]
  - Brain fog [None]
  - Anxiety [None]

NARRATIVE: CASE EVENT DATE: 20110605
